FAERS Safety Report 8634263 (Version 4)
Quarter: 2013Q1

REPORT INFORMATION
  Report Type: Report from Study
  Country: CA (occurrence: CA)
  Receive Date: 20120626
  Receipt Date: 20130104
  Transmission Date: 20140127
  Serious: Yes (Other)
  Sender: FDA-Public Use
  Company Number: CA-BAYER-2012-062427

PATIENT
  Age: 57 Year
  Sex: Female

DRUGS (5)
  1. BETASERON [Suspect]
     Indication: MULTIPLE SCLEROSIS
     Dosage: 0.25 MG, UNK
     Dates: start: 20000101
  2. CLONAZEPAM [Concomitant]
  3. VITAMIN D [Concomitant]
  4. VITAMIN B12 [Concomitant]
  5. OMEGA 3 [Concomitant]

REACTIONS (4)
  - Injection site discomfort [None]
  - Injection site pruritus [None]
  - Incision site erythema [None]
  - Incision site complication [None]
